APPROVED DRUG PRODUCT: EFINACONAZOLE
Active Ingredient: EFINACONAZOLE
Strength: 10%
Dosage Form/Route: SOLUTION;TOPICAL
Application: A211969 | Product #001 | TE Code: AB
Applicant: UMEDICA LABORATORIES PRIVATE LTD
Approved: Jun 21, 2021 | RLD: No | RS: No | Type: RX